FAERS Safety Report 13323316 (Version 1)
Quarter: 2017Q1

REPORT INFORMATION
  Report Type: Spontaneous
  Country: US (occurrence: US)
  Receive Date: 20170310
  Receipt Date: 20170310
  Transmission Date: 20170428
  Serious: Yes (Life-Threatening, Hospitalization, Other)
  Sender: FDA-Public Use
  Company Number: US-BRISTOL-MYERS SQUIBB COMPANY-BMS-2017-018271

PATIENT
  Age: 54 Year
  Sex: Female
  Weight: 63.95 kg

DRUGS (1)
  1. ORENCIA [Suspect]
     Active Substance: ABATACEPT
     Indication: RHEUMATOID ARTHRITIS
     Dosage: UNK, QWK
     Route: 058
     Dates: start: 2010

REACTIONS (10)
  - Intestinal perforation [Unknown]
  - Surgery [Unknown]
  - Rheumatoid arthritis [Unknown]
  - Abscess [Unknown]
  - Sleep disorder [Unknown]
  - Coma [Unknown]
  - Bronchitis [Unknown]
  - Oophorectomy [Unknown]
  - Sepsis [Unknown]
  - Pneumonia [Unknown]

NARRATIVE: CASE EVENT DATE: 201603
